FAERS Safety Report 16892788 (Version 3)
Quarter: 2020Q4

REPORT INFORMATION
  Report Type: Spontaneous
  Country: FR (occurrence: FR)
  Receive Date: 20191007
  Receipt Date: 20201111
  Transmission Date: 20210113
  Serious: Yes (Hospitalization)
  Sender: FDA-Public Use
  Company Number: FR-ALLERGAN-1940140US

PATIENT
  Sex: Male

DRUGS (3)
  1. GANFORT [Suspect]
     Active Substance: BIMATOPROST\TIMOLOL
     Indication: OCULAR HYPERTENSION
     Dosage: 1 DF, QHS
     Route: 047
     Dates: start: 20190709
  2. CORTANCYL [Suspect]
     Active Substance: PREDNISONE
     Indication: UVEITIS
     Dosage: ACTUAL: 2-0-0
     Route: 048
     Dates: start: 201805
  3. DACUDOSES [Suspect]
     Active Substance: BORIC ACID\SODIUM BORATE
     Indication: UVEITIS
     Dosage: 1 DF, QD
     Route: 047
     Dates: start: 20181114, end: 20190902

REACTIONS (1)
  - Pancreatitis acute [Recovering/Resolving]

NARRATIVE: CASE EVENT DATE: 20190826
